FAERS Safety Report 13813749 (Version 1)
Quarter: 2017Q3

REPORT INFORMATION
  Report Type: Spontaneous
  Country: US (occurrence: US)
  Receive Date: 20170731
  Receipt Date: 20170731
  Transmission Date: 20171127
  Serious: No
  Sender: FDA-Public Use
  Company Number: US-PFIZER INC-2016552271

PATIENT
  Age: 54 Year
  Sex: Female

DRUGS (31)
  1. PROVENTIL [Concomitant]
     Active Substance: ALBUTEROL
     Indication: DYSPNOEA
     Dosage: 3 ML, AS NEEDED (0.083% INHALATION, 3 ML BY INHALTION-SVN ROUTE EVERY FOUR HOURS
  2. FLOVENT [Concomitant]
     Active Substance: FLUTICASONE PROPIONATE
     Dosage: 2X/DAY [TAKE 2 PUFFS BY INHALATION]
     Route: 055
  3. ALAVERT ALLERGY [Concomitant]
     Active Substance: LORATADINE
     Dosage: 10 MG, DAILY
     Route: 048
  4. PROTONIX [Concomitant]
     Active Substance: PANTOPRAZOLE SODIUM
     Dosage: 40 MG, 2X/DAY
     Route: 048
  5. EFFEXOR XR [Concomitant]
     Active Substance: VENLAFAXINE HYDROCHLORIDE
     Dosage: 75 MG, DAILY (IN AM)
     Route: 048
  6. AMBIEN [Concomitant]
     Active Substance: ZOLPIDEM TARTRATE
     Indication: SLEEP DISORDER
     Dosage: 10 MG, AS NEEDED (EVERY BEDTIME AS NEEDED )
     Route: 048
  7. JEVITY [Concomitant]
     Active Substance: DIETARY SUPPLEMENT
     Dosage: TAKE 1 CAN EVERY SIX HOURS, TO TAKE IN 4 CANS  PER DAY
     Route: 048
  8. LYRICA [Suspect]
     Active Substance: PREGABALIN
     Dosage: 150 MG, 2X/DAY
     Route: 048
  9. COPPER GLUCONATE [Concomitant]
     Active Substance: COPPER GLUCONATE
     Dosage: 14 MG, DAILY (TAKE 56 DROPS BY MOUTH AS DIRECTED. TAKES TOTAL OF 14MG DAILY)
     Route: 048
  10. PRADAXA [Concomitant]
     Active Substance: DABIGATRAN ETEXILATE MESYLATE
     Dosage: 150 MG, 2X/DAY
     Route: 048
  11. DESENEX NOS [Concomitant]
     Active Substance: CLOTRIMAZOLE OR MICONAZOLE NITRATE
     Dosage: 2X/DAY (1 APPLICATION)
     Route: 061
  12. NICODERM CQ [Concomitant]
     Active Substance: NICOTINE
     Dosage: DAILY [1 PATCH ONTO SKIN DAILY]
     Route: 062
  13. VENTOLIN [Concomitant]
     Active Substance: ALBUTEROL SULFATE
     Indication: DYSPNOEA
     Dosage: 3 ML, AS NEEDED (0.083% INHALATION, 3 ML INHALATION-SVN ROUTE EVERY FOUR HOURS
  14. VENTOLIN HFA [Concomitant]
     Active Substance: ALBUTEROL SULFATE
     Indication: DYSPNOEA
     Dosage: UNK UNK, AS NEEDED [108 (90 BASE) MCG/ACT AERO SOLN-TAKE 2 PUFFS BY INHALATION EVERY FOURS]
     Route: 055
  15. CALTRATE WITH VITAMIN D [Concomitant]
     Active Substance: CALCIUM CARBONATE\CHOLECALCIFEROL
     Dosage: 1 DF, 2X/DAY ([CALCIUM CARBONATE: 600 MG/ VITAMIN D: 400 MG],BEFORE MEALS)
     Route: 048
  16. DILAUDID [Concomitant]
     Active Substance: HYDROMORPHONE HYDROCHLORIDE
     Indication: PAIN
     Dosage: AS NEEDED (TAKE 0.5 TABS BY MOUTH EVERY SIX HOURS AS NEEDED, MAX DAILY AMOUNT: 4 MG)
     Route: 048
  17. ULTRAM [Concomitant]
     Active Substance: TRAMADOL HYDROCHLORIDE
     Indication: PAIN
     Dosage: 50 MG, AS NEEDED (EVERY 6 HOUR)
     Route: 048
  18. AMBIEN [Concomitant]
     Active Substance: ZOLPIDEM TARTRATE
     Indication: INSOMNIA
  19. LIORESAL [Concomitant]
     Active Substance: BACLOFEN
     Dosage: 10 MG, 3X/DAY
     Route: 048
  20. EFFEXOR XR [Concomitant]
     Active Substance: VENLAFAXINE HYDROCHLORIDE
     Dosage: 37.5 MG, 1X/DAY (BEDTIME)
     Route: 048
  21. ATIVAN [Concomitant]
     Active Substance: LORAZEPAM
     Dosage: TAKE 1 TAB BY MOUTH AS DIRECTED. 1MG EVERY AM AND HS; 0.5MG IN AFTERNOON)
     Route: 048
  22. REQUIP [Concomitant]
     Active Substance: ROPINIROLE HYDROCHLORIDE
     Dosage: 0.5 MG, 2X/DAY
     Route: 048
  23. EFFEXOR XR [Concomitant]
     Active Substance: VENLAFAXINE HYDROCHLORIDE
     Dosage: 300 MG, 1X/DAY (TAKES WITH 75 MG IN AM)
     Route: 048
  24. DURAGESIC [Concomitant]
     Active Substance: FENTANYL
     Dosage: PLACE 1 PATCH ONTO SKIN EVERY THREE DAYS]
     Route: 062
  25. REMERON [Concomitant]
     Active Substance: MIRTAZAPINE
     Dosage: 30 MG, 1X/DAY (BEDTIME)
     Route: 048
  26. CLARITIN [Concomitant]
     Active Substance: LORATADINE
     Dosage: 10 MG, DAILY
     Route: 048
  27. VITAMIN D [Concomitant]
     Active Substance: CHOLECALCIFEROL
     Dosage: 50000 IU, 2X/WEEK
     Route: 048
  28. LASIX [Concomitant]
     Active Substance: FUROSEMIDE
     Dosage: 2 MG, DAILY
     Route: 048
  29. MYCOSTATIN [Concomitant]
     Active Substance: NYSTATIN
     Dosage: 2X/DAY [APPLY TWICE A DAY TO GROIN AND UNDER LEFT BREAST]
  30. PHENERGAN [Concomitant]
     Active Substance: PROMETHAZINE HYDROCHLORIDE
     Indication: NAUSEA
     Dosage: 25 MG, AS NEEDED (EVERY SIX HOURS AS NEEDED )
     Route: 048
  31. CARAFATE [Concomitant]
     Active Substance: SUCRALFATE
     Dosage: 10 ML, 2X/DAY
     Route: 048

REACTIONS (1)
  - Pain in extremity [Unknown]
